FAERS Safety Report 10063981 (Version 1)
Quarter: 2014Q2

REPORT INFORMATION
  Report Type: Spontaneous
  Country: US (occurrence: US)
  Receive Date: 20140408
  Receipt Date: 20140408
  Transmission Date: 20141212
  Serious: Yes (Hospitalization)
  Sender: FDA-Public Use
  Company Number: US-BIOGENIDEC-2014BI029496

PATIENT
  Age: 61 Year
  Sex: Male

DRUGS (12)
  1. TECFIDERA [Suspect]
     Indication: MULTIPLE SCLEROSIS
     Route: 048
  2. AMANTADINE HCL [Concomitant]
  3. CITALOPRAM HYDROBROMIDE [Concomitant]
  4. CLOPIDOGREL BISULFATE [Concomitant]
  5. CYCLOBENZAPRINE HCL [Concomitant]
  6. GABAPENTIN [Concomitant]
  7. ISOSORBIDE DINITRATE [Concomitant]
  8. LISINOPRIL [Concomitant]
  9. METOPROLOL TARTRATE [Concomitant]
  10. SIMVASTATIN [Concomitant]
  11. TAMSULOSIN HCL [Concomitant]
  12. TRAZODONE HCL [Concomitant]

REACTIONS (1)
  - Multiple sclerosis relapse [Unknown]
